FAERS Safety Report 20478940 (Version 2)
Quarter: 2022Q1

REPORT INFORMATION
  Report Type: Spontaneous
  Country: FR (occurrence: FR)
  Receive Date: 20220216
  Receipt Date: 20220217
  Transmission Date: 20220423
  Serious: Yes (Hospitalization)
  Sender: FDA-Public Use
  Company Number: None

PATIENT
  Age: 64 Year
  Sex: Female

DRUGS (2)
  1. DABRAFENIB [Suspect]
     Active Substance: DABRAFENIB
     Indication: Malignant melanoma
     Dosage: UNK
     Route: 048
     Dates: start: 20211214
  2. TRAMETINIB [Suspect]
     Active Substance: TRAMETINIB
     Indication: Malignant melanoma
     Dosage: UNK
     Route: 065
     Dates: start: 20211214

REACTIONS (6)
  - Hepatic cytolysis [Not Recovered/Not Resolved]
  - Meningitis [Recovered/Resolved]
  - Rhabdomyolysis [Not Recovered/Not Resolved]
  - Rash [Not Recovered/Not Resolved]
  - Vomiting [Not Recovered/Not Resolved]
  - Acute kidney injury [Not Recovered/Not Resolved]

NARRATIVE: CASE EVENT DATE: 20211217
